FAERS Safety Report 13528897 (Version 3)
Quarter: 2017Q3

REPORT INFORMATION
  Report Type: Spontaneous
  Country: US (occurrence: US)
  Receive Date: 20170509
  Receipt Date: 20170710
  Transmission Date: 20171127
  Serious: No
  Sender: FDA-Public Use
  Company Number: US-009507513-1705USA004689

PATIENT
  Age: 31 Year
  Sex: Female
  Weight: 65.7 kg

DRUGS (4)
  1. PREGNYL [Suspect]
     Active Substance: CHORIOGONADOTROPIN ALFA
     Indication: OVULATION INDUCTION
     Dosage: 10.000 IU, ONCE
     Route: 030
     Dates: start: 20170313, end: 20170313
  2. GONAL-F [Concomitant]
     Active Substance: FOLLITROPIN
     Indication: OVULATION INDUCTION
     Dosage: 225 IU, QD
     Route: 058
     Dates: start: 20170304, end: 20170313
  3. LUPRON [Concomitant]
     Active Substance: LEUPROLIDE ACETATE
     Indication: PREMATURE OVULATION
     Dosage: 1MG/0.2ML, QD (TOTAL DAILY DOSE: 0.1- 0.05)
     Route: 058
     Dates: start: 20170222, end: 20170314
  4. MENOPUR [Concomitant]
     Active Substance: FOLLITROPIN\LUTEINIZING HORMONE
     Indication: OVULATION INDUCTION
     Dosage: 150 IU, QD
     Route: 058
     Dates: start: 20170304, end: 20170313

REACTIONS (3)
  - Product compounding quality issue [Unknown]
  - Poor quality drug administered [Unknown]
  - Drug ineffective [Recovered/Resolved]

NARRATIVE: CASE EVENT DATE: 20170315
